FAERS Safety Report 13570176 (Version 2)
Quarter: 2017Q2

REPORT INFORMATION
  Report Type: Spontaneous
  Country: US (occurrence: US)
  Receive Date: 20170522
  Receipt Date: 20170525
  Transmission Date: 20170830
  Serious: No
  Sender: FDA-Public Use
  Company Number: US-ALLERGAN-1720396US

PATIENT
  Age: 33 Year
  Sex: Female

DRUGS (1)
  1. NO SUSPECT ALLERGAN PRODUCT [Suspect]
     Active Substance: UNSPECIFIED INGREDIENT
     Indication: DERMATITIS BULLOUS
     Dosage: UNK, UNKNOWN
     Route: 065

REACTIONS (1)
  - No adverse event [Unknown]
